FAERS Safety Report 15853258 (Version 2)
Quarter: 2019Q1

REPORT INFORMATION
  Report Type: Spontaneous
  Country: US (occurrence: US)
  Receive Date: 20190122
  Receipt Date: 20190124
  Transmission Date: 20190417
  Serious: No
  Sender: FDA-Public Use
  Company Number: US-GLAXOSMITHKLINE-US2019007388

PATIENT
  Sex: Female

DRUGS (1)
  1. ABREVA [Suspect]
     Active Substance: DOCOSANOL
     Indication: ORAL HERPES
     Dosage: UNK, PUT IT ON 2 OR 3 TIMES
     Dates: start: 20190110

REACTIONS (5)
  - Application site pruritus [Unknown]
  - Application site warmth [Unknown]
  - Application site reaction [Unknown]
  - Hypersensitivity [Unknown]
  - Wrong technique in product usage process [Unknown]
